FAERS Safety Report 13138651 (Version 1)
Quarter: 2017Q1

REPORT INFORMATION
  Report Type: Spontaneous
  Country: US (occurrence: US)
  Receive Date: 20170123
  Receipt Date: 20170123
  Transmission Date: 20170428
  Serious: No
  Sender: FDA-Public Use
  Company Number: US-UNITED THERAPEUTICS-UNT-2016-011698

PATIENT
  Age: 47 Year
  Sex: Male
  Weight: 104.31 kg

DRUGS (7)
  1. REMODULIN [Suspect]
     Active Substance: TREPROSTINIL
     Dosage: UNK
     Route: 058
     Dates: start: 20160719, end: 20160727
  2. LETAIRIS [Suspect]
     Active Substance: AMBRISENTAN
     Indication: PRODUCT USED FOR UNKNOWN INDICATION
     Dosage: 10 MG, QD
     Route: 065
     Dates: start: 20140519
  3. ELIQUIS [Concomitant]
     Active Substance: APIXABAN
     Indication: PRODUCT USED FOR UNKNOWN INDICATION
     Route: 065
  4. REMODULIN [Suspect]
     Active Substance: TREPROSTINIL
     Indication: PULMONARY HYPERTENSION
     Dosage: 0.002 ?G/KG, CONTINUING
     Route: 058
     Dates: start: 20160706, end: 20160727
  5. LETAIRIS [Suspect]
     Active Substance: AMBRISENTAN
     Dosage: UNK
     Route: 065
  6. REVATIO [Concomitant]
     Active Substance: SILDENAFIL CITRATE
     Indication: PRODUCT USED FOR UNKNOWN INDICATION
     Route: 065
  7. LETAIRIS [Suspect]
     Active Substance: AMBRISENTAN
     Dosage: 5 MG, QD
     Route: 065
     Dates: start: 20140519

REACTIONS (16)
  - Infusion site rash [Unknown]
  - Fatigue [Unknown]
  - Pain [Not Recovered/Not Resolved]
  - Device dislocation [Unknown]
  - Infusion site pain [Not Recovered/Not Resolved]
  - Dyspepsia [Recovered/Resolved]
  - Infusion site erythema [Not Recovered/Not Resolved]
  - Headache [Recovered/Resolved]
  - Nausea [Unknown]
  - Infusion site oedema [Not Recovered/Not Resolved]
  - Hypotension [Unknown]
  - Infusion site warmth [Not Recovered/Not Resolved]
  - Chest discomfort [Unknown]
  - Dizziness [Unknown]
  - Abdominal distension [Not Recovered/Not Resolved]
  - Treatment noncompliance [Unknown]

NARRATIVE: CASE EVENT DATE: 201607
